FAERS Safety Report 6603948-2 (Version None)
Quarter: 2010Q1

REPORT INFORMATION
  Report Type: 
  Country: None (occurrence: None)
  Receive Date: 20100226
  Receipt Date: 20090325
  Transmission Date: 20100710
  Serious: No
  Sender: FDA-Public Use
  Company Number: A0775358A

PATIENT
  Age: 52 Year
  Sex: Female

DRUGS (8)
  1. LAMOTRIGINE [Suspect]
     Dosage: 100MG TWICE PER DAY
     Route: 048
     Dates: start: 20080901, end: 20081101
  2. ESTROGEN + METHYLTESTOSTERONE [Concomitant]
  3. MEDROXYPROGESTERONE [Concomitant]
  4. EFFEXOR XR [Concomitant]
  5. SEROQUEL [Concomitant]
  6. PROVIGIL [Concomitant]
  7. ALPRAZOLAM [Concomitant]
  8. LAMICTAL CD [Concomitant]
     Route: 048

REACTIONS (2)
  - DRUG INEFFECTIVE [None]
  - FEELING ABNORMAL [None]
